FAERS Safety Report 6916054-4 (Version None)
Quarter: 2010Q3

REPORT INFORMATION
  Report Type: 
  Country: None (occurrence: None)
  Receive Date: 20100805
  Receipt Date: 20100730
  Transmission Date: 20110219
  Serious: Yes (Hospitalization)
  Sender: FDA-Public Use
  Company Number: 2010SP041748

PATIENT
  Age: 60 Year
  Sex: Female
  Weight: 64.0479 kg

DRUGS (16)
  1. TEMOZOLOMIDE [Suspect]
     Indication: ACUTE MYELOID LEUKAEMIA
     Dosage: QD;PO
     Route: 048
     Dates: start: 20100722, end: 20100728
  2. TEMOZOLOMIDE [Suspect]
     Indication: LEUKAEMIA RECURRENT
     Dosage: QD;PO
     Route: 048
     Dates: start: 20100722, end: 20100728
  3. ABT-888 [Suspect]
     Indication: ACUTE MYELOID LEUKAEMIA
     Dosage: BID;PO
     Route: 048
     Dates: start: 20100720, end: 20100720
  4. ABT-888 [Suspect]
     Indication: LEUKAEMIA RECURRENT
     Dosage: BID;PO
     Route: 048
     Dates: start: 20100720, end: 20100720
  5. ABT-888 [Suspect]
     Indication: ACUTE MYELOID LEUKAEMIA
     Dosage: BID;PO
     Route: 048
     Dates: start: 20100723, end: 20100729
  6. ABT-888 [Suspect]
     Indication: LEUKAEMIA RECURRENT
     Dosage: BID;PO
     Route: 048
     Dates: start: 20100723, end: 20100729
  7. ACYCLOVIR [Concomitant]
  8. ALLOPURINOL [Concomitant]
  9. AMICAR [Concomitant]
  10. AZTREONAM [Concomitant]
  11. CARVEDILOL [Concomitant]
  12. MOXIFLOXACIN [Concomitant]
  13. PANTOPRAZOLE [Concomitant]
  14. PAXIL [Concomitant]
  15. VANCOMYCIN [Concomitant]
  16. PLATELETS [Concomitant]

REACTIONS (4)
  - ACUTE MYELOID LEUKAEMIA [None]
  - HYPOXIA [None]
  - LEUKAEMIA RECURRENT [None]
  - PNEUMONIA [None]
